FAERS Safety Report 7506608-9 (Version None)
Quarter: 2011Q2

REPORT INFORMATION
  Report Type: 
  Country: None (occurrence: None)
  Receive Date: 20110526
  Receipt Date: 20110512
  Transmission Date: 20111010
  Serious: Yes (Other)
  Sender: FDA-Public Use
  Company Number: PHHY2011CA40899

PATIENT
  Sex: Female

DRUGS (26)
  1. CLOZARIL [Suspect]
     Dosage: 450 MG, QHS
  2. BENZTROPINE MESYLATE [Concomitant]
     Dosage: 2 MG, DAILY (Q.A.M)
  3. COZAAR [Concomitant]
     Dosage: 100 MG, BID (Q.A.M AND Q.H.S)
  4. METFFORMIN HYDROCHLORIDE [Concomitant]
     Dosage: 500 MG, TWO TABLETS TWICE A DAY
     Dates: start: 20110308
  5. METFORMIN HCL [Concomitant]
     Dosage: 500 MG, TWO TABLETS TWICE A DAY (Q BREAKFAST AND Q SUPPER)
     Dates: start: 20110308
  6. PIOGLITAZONE HCL [Concomitant]
     Dosage: 45 MG, TAKE 1 TABLET DAILY
  7. DICLO [Concomitant]
     Dosage: APPLY 3 TIMES DAILY TO LEFT HIP
     Dates: start: 20110223
  8. PMS BENZTROPINE [Concomitant]
     Dosage: 2 MG, 1 TABLET EVERY MORNING
     Dates: start: 20110308
  9. NOVO-GESIC [Concomitant]
     Dosage: 325 MG, 2 TABLETS 4 TIMES DAILY
  10. GLICLAZIDE [Concomitant]
     Dosage: 80 MG, TWO TABLETS TWICE DAY (Q BREAKFAST AND SUPPER)
     Dates: start: 20110308
  11. BENZTROPINE MESYLATE [Concomitant]
     Dosage: 2 MG, 1 TABLET EVERY MORNING
     Dates: start: 20110308
  12. BISOPROLOL FUMARATE [Concomitant]
     Dosage: 5 MG, ONE-HALF TABLET DAILY
     Dates: start: 20110308
  13. ACETAMINOPHEN [Concomitant]
     Dosage: 325 MG, 2 TABLETS 4 TIMES DAILY
  14. CLOZARIL [Suspect]
     Dosage: 100 MG, 4 TABLETS AT BEDTIME ALONG WITH 2 TABLETS OF 25 MG TO MAKE 450 MG
     Dates: start: 20110508
  15. BISOPROLOL FUMARATE [Concomitant]
     Dosage: 2.5 MG, DAILY (Q.A.M)
     Dates: start: 20110308
  16. RESTORALAX [Concomitant]
  17. ROSUVASTATIN [Concomitant]
     Dosage: 40 MG, QD (1 TABLET DAILY)
     Dates: start: 20110308
  18. CLOZARIL [Suspect]
     Indication: SCHIZOPHRENIA
     Dates: start: 20090922
  19. CIPRO [Concomitant]
     Dosage: 500 MG, BID
     Route: 048
  20. APO-PIOGLITAZONE [Concomitant]
     Dosage: 45 MG, TAKE 1 TABLET DAILY
  21. CLOZARIL [Suspect]
     Dosage: 25 MG, BID (2 TABLETS AT BEDTIME)
     Dates: start: 20110308
  22. CLOZARIL [Suspect]
     Dosage: 25 MG, 2 TABLETS AT BEDTIME
     Dates: start: 20110425
  23. CLOZARIL [Suspect]
     Dates: start: 20110510
  24. CRESTOR [Concomitant]
     Dosage: 40 MG, DAILY (Q BREAKFAST)
  25. ANTIPSYCHOTICS [Concomitant]
  26. ASCENSIA CONTOUR STRIP [Concomitant]
     Dosage: USE AS DIRECTED
     Dates: start: 20110505

REACTIONS (15)
  - PARANASAL CYST [None]
  - DYSLEXIA [None]
  - COGNITIVE DISORDER [None]
  - CONFUSIONAL STATE [None]
  - URINARY TRACT INFECTION [None]
  - MOOD SWINGS [None]
  - WHITE BLOOD CELL COUNT INCREASED [None]
  - GLYCOSYLATED HAEMOGLOBIN INCREASED [None]
  - DIABETES MELLITUS [None]
  - SCHIZOPHRENIA [None]
  - HAEMOGLOBIN INCREASED [None]
  - BLOOD GLUCOSE INCREASED [None]
  - ASTHENIA [None]
  - ATROPHY [None]
  - DIZZINESS [None]
